FAERS Safety Report 13054367 (Version 2)
Quarter: 2017Q1

REPORT INFORMATION
  Report Type: Spontaneous
  Country: AU (occurrence: AU)
  Receive Date: 20161222
  Receipt Date: 20170302
  Transmission Date: 20170428
  Serious: Yes (Hospitalization, Other)
  Sender: FDA-Public Use
  Company Number: AU-PFIZER INC-2016592348

PATIENT
  Age: 21 Year
  Sex: Male

DRUGS (1)
  1. ZELDOX [Suspect]
     Active Substance: ZIPRASIDONE
     Dosage: FROM 20 TO 80MG
     Dates: start: 200705

REACTIONS (9)
  - Headache [Unknown]
  - Somnolence [Unknown]
  - Anaphylactic reaction [Not Recovered/Not Resolved]
  - Pruritus [Not Recovered/Not Resolved]
  - Cerebral disorder [Not Recovered/Not Resolved]
  - Intelligence test abnormal [Not Recovered/Not Resolved]
  - Insomnia [Recovered/Resolved]
  - Impaired driving ability [Not Recovered/Not Resolved]
  - Weight decreased [Recovered/Resolved]

NARRATIVE: CASE EVENT DATE: 200705
